FAERS Safety Report 12891971 (Version 2)
Quarter: 2017Q2

REPORT INFORMATION
  Report Type: Spontaneous
  Country: US (occurrence: US)
  Receive Date: 20161028
  Receipt Date: 20170424
  Transmission Date: 20170830
  Serious: No
  Sender: FDA-Public Use
  Company Number: US-AUROBINDO-AUR-APU-2015-04851

PATIENT
  Sex: Female

DRUGS (4)
  1. VALSARTAN 80MG [Suspect]
     Active Substance: VALSARTAN
     Indication: HYPERTENSION
     Dosage: 80 MG, UNK
     Route: 065
     Dates: start: 20150406
  2. CHOLESTEROL [Concomitant]
     Active Substance: CHOLESTEROL
     Indication: PRODUCT USED FOR UNKNOWN INDICATION
     Route: 065
  3. VALSARTAN 80MG [Suspect]
     Active Substance: VALSARTAN
     Dosage: 40 MG, UNK
     Route: 065
  4. BABY ASPIRIN [Concomitant]
     Active Substance: ASPIRIN
     Indication: PRODUCT USED FOR UNKNOWN INDICATION
     Route: 065

REACTIONS (2)
  - Hypotension [Unknown]
  - Drug ineffective [Unknown]

NARRATIVE: CASE EVENT DATE: 20150410
